FAERS Safety Report 7810227-4 (Version None)
Quarter: 2011Q4

REPORT INFORMATION
  Report Type: 
  Country: None (occurrence: None)
  Receive Date: 20111012
  Receipt Date: 20111005
  Transmission Date: 20120403
  Serious: Yes (Other)
  Sender: FDA-Public Use
  Company Number: CN-ABBOTT-11P-035-0861904-00

PATIENT
  Age: 62 Year
  Sex: Male

DRUGS (2)
  1. DEPAKENE [Suspect]
     Indication: EPILEPSY
     Dosage: 1.5 TABS DAILY
     Route: 048
     Dates: start: 20050701
  2. GINKGO BILOBA [Concomitant]
     Indication: PRODUCT USED FOR UNKNOWN INDICATION
     Dates: start: 20110401

REACTIONS (3)
  - MUSCLE SPASMS [None]
  - EPILEPSY [None]
  - LOSS OF CONSCIOUSNESS [None]
